FAERS Safety Report 10511338 (Version 1)
Quarter: 2014Q3

REPORT INFORMATION
  Report Type: Spontaneous
  Country: US (occurrence: None)
  Receive Date: 20140924
  Receipt Date: 20140924
  Transmission Date: 20150326
  Serious: Yes (Hospitalization)
  Sender: FDA-Public Use
  Company Number: 2014STPI000180

PATIENT
  Age: 77 Year
  Sex: Male
  Weight: 70.8 kg

DRUGS (8)
  1. ATENOLOL. [Concomitant]
     Active Substance: ATENOLOL
  2. GLIPIZIDE. [Concomitant]
     Active Substance: GLIPIZIDE
  3. VITAMIN B12 [Concomitant]
     Active Substance: CYANOCOBALAMIN
  4. MATULANE [Suspect]
     Active Substance: PROCARBAZINE HYDROCHLORIDE
     Indication: BRAIN NEOPLASM MALIGNANT
     Route: 048
     Dates: start: 20140108, end: 20140428
  5. ZOCOR [Concomitant]
     Active Substance: SIMVASTATIN
  6. COENZYME Q10 (UBIDECARENONE) [Concomitant]
  7. MICARDIS [Concomitant]
     Active Substance: TELMISARTAN
  8. METFORMIN HYDROCHLORIDE. [Concomitant]
     Active Substance: METFORMIN HYDROCHLORIDE

REACTIONS (7)
  - Febrile neutropenia [None]
  - Pancytopenia [None]
  - Asthenia [None]
  - Malaise [None]
  - Rhinorrhoea [None]
  - Pain [None]
  - Fall [None]

NARRATIVE: CASE EVENT DATE: 20140422
